FAERS Safety Report 8960374 (Version 2)
Quarter: 2012Q4

REPORT INFORMATION
  Report Type: 
  Country: TR (occurrence: TR)
  Receive Date: 20121211
  Receipt Date: 20121227
  Transmission Date: 20130627
  Serious: Yes (Death, Life-Threatening, Hospitalization)
  Sender: FDA-Public Use
  Company Number: TR-SP-2012-11729

PATIENT
  Age: 63 Year
  Sex: Male

DRUGS (1)
  1. IMMUCYST [Suspect]
     Indication: BLADDER CANCER
     Dosage: Not reported
     Route: 043

REACTIONS (9)
  - Pulmonary embolism [Fatal]
  - Hypersensitivity [Fatal]
  - Disseminated intravascular coagulation [Fatal]
  - Multi-organ failure [Fatal]
  - Sepsis [Fatal]
  - Renal failure acute [Fatal]
  - Metabolic acidosis [Fatal]
  - Respiratory arrest [Fatal]
  - Cardiac arrest [Fatal]
